FAERS Safety Report 6755019-2 (Version None)
Quarter: 2010Q2

REPORT INFORMATION
  Report Type: 
  Country: None (occurrence: None)
  Receive Date: 20100602
  Receipt Date: 20100504
  Transmission Date: 20101027
  Serious: Yes (Death)
  Sender: FDA-Public Use
  Company Number: 1053087-2010-00003

PATIENT
  Age: 53 Year
  Sex: Male
  Weight: 99.3377 kg

DRUGS (1)
  1. SODIUM CITRATE [Suspect]
     Indication: APHERESIS
     Dosage: 1 BAG PER PROCEDURE/IV
     Route: 042
     Dates: start: 20100417

REACTIONS (1)
  - MESOTHELIOMA [None]
